FAERS Safety Report 9271435 (Version 4)
Quarter: 2013Q2

REPORT INFORMATION
  Report Type: Report from Study
  Country: CA (occurrence: CA)
  Receive Date: 20130506
  Receipt Date: 20130602
  Transmission Date: 20140414
  Serious: Yes (Hospitalization, Other)
  Sender: FDA-Public Use
  Company Number: PHHY2013CA029044

PATIENT
  Age: 57 Year
  Sex: Male

DRUGS (3)
  1. SANDOSTATIN [Suspect]
     Indication: NEUROENDOCRINE TUMOUR
     Dosage: 200 UG, TID
     Route: 058
     Dates: start: 20130319
  2. SANDOSTATIN [Suspect]
     Dosage: UNK UKN, UNK
     Route: 058
  3. SANDOSTATIN LAR [Suspect]
     Indication: NEUROENDOCRINE TUMOUR
     Dosage: 30 MG, UNK
     Route: 030
     Dates: start: 20130501

REACTIONS (16)
  - Post-traumatic stress disorder [Unknown]
  - Malaise [Unknown]
  - Blood pressure increased [Unknown]
  - Hypersensitivity [Unknown]
  - Skin reaction [Unknown]
  - Diarrhoea [Unknown]
  - Traumatic shock [Unknown]
  - Metastases to liver [Unknown]
  - Stress [Unknown]
  - Agitation [Unknown]
  - Insomnia [Unknown]
  - Disorientation [Unknown]
  - Confusional state [Unknown]
  - Speech disorder [Unknown]
  - Dyskinesia [Unknown]
  - Decreased appetite [Unknown]
